FAERS Safety Report 4327706-7 (Version None)
Quarter: 2004Q1

REPORT INFORMATION
  Report Type: 
  Country: None (occurrence: None)
  Receive Date: 20040325
  Receipt Date: 20040316
  Transmission Date: 20041129
  Serious: Yes (Other)
  Sender: FDA-Public Use
  Company Number: 2004204341US

PATIENT
  Age: 60 Year
  Sex: Female

DRUGS (10)
  1. CELEBREX [Suspect]
     Indication: ARTHRITIS
     Dosage: 200 MG, BID,
     Dates: start: 20000101
  2. DYNACIRC [Concomitant]
  3. DITROPAN [Concomitant]
  4. ALLEGRA [Concomitant]
  5. PROVERA [Concomitant]
  6. COZAAR [Concomitant]
  7. CELEXA (CITALOPRAM HYDBROMIDE) [Concomitant]
  8. SINEMET [Concomitant]
  9. PRILOSEC [Concomitant]
  10. PRAVACHOL [Concomitant]

REACTIONS (1)
  - LIGAMENT INJURY [None]
